FAERS Safety Report 5192171-7 (Version None)
Quarter: 2006Q4

REPORT INFORMATION
  Report Type: 
  Country: None (occurrence: None)
  Receive Date: 20061220
  Receipt Date: 20061205
  Transmission Date: 20070319
  Serious: Yes (Hospitalization)
  Sender: FDA-Public Use
  Company Number: 2006S1011269

PATIENT
  Age: 36 Year
  Sex: Female
  Weight: 109.7705 kg

DRUGS (8)
  1. FENTANYL TRANSDERMAL SYSTEM [Suspect]
     Indication: CANCER PAIN
     Dosage: 75 UG/HR; Q3D; TDER
     Route: 062
     Dates: start: 20061001, end: 20061112
  2. FENTANYL TRANSDERMAL SYSTEM [Suspect]
     Indication: CANCER PAIN
     Dosage: 25 UG/HR; Q3D; TDER
     Route: 062
     Dates: start: 20061016
  3. SORAFENIB (CON.) [Concomitant]
  4. CITALOPRAM (CON.) [Concomitant]
  5. LANSOPRAZOLE (CON.) [Concomitant]
  6. BROMOCRIPTINE (CON.) [Concomitant]
  7. HYDROMORPHONE HYDROCHLORIDE (CON.) [Concomitant]
  8. OTHER NUTRIENTS (CON.) [Concomitant]

REACTIONS (7)
  - APPLICATION SITE IRRITATION [None]
  - APPLICATION SITE PRURITUS [None]
  - BACK PAIN [None]
  - HAEMOGLOBIN DECREASED [None]
  - PHARMACEUTICAL PRODUCT COMPLAINT [None]
  - PLATELET COUNT DECREASED [None]
  - PULMONARY OEDEMA [None]
